FAERS Safety Report 7190678-4 (Version None)
Quarter: 2010Q4

REPORT INFORMATION
  Report Type: 
  Country: None (occurrence: None)
  Receive Date: 20101223
  Receipt Date: 20101213
  Transmission Date: 20110411
  Serious: Yes (Life-Threatening, Disabling)
  Sender: FDA-Public Use
  Company Number: JP-PFIZER INC-2010177424

PATIENT
  Age: 68 Year
  Sex: Male
  Weight: 58 kg

DRUGS (2)
  1. CAMPTO [Suspect]
     Indication: GASTRIC CANCER
     Dosage: 60 MG/M2, UNK
     Route: 041
     Dates: start: 20101126, end: 20101126
  2. CISPLATIN [Suspect]
     Indication: GASTRIC CANCER
     Dosage: 30 MG/M2, UNK
     Route: 041
     Dates: start: 20101126, end: 20101126

REACTIONS (1)
  - ACUTE MYOCARDIAL INFARCTION [None]
